FAERS Safety Report 9605133 (Version 2)
Quarter: 2013Q4

REPORT INFORMATION
  Report Type: Report from Study
  Country: JP (occurrence: JP)
  Receive Date: 20131008
  Receipt Date: 20131008
  Transmission Date: 20140711
  Serious: Yes (Other)
  Sender: FDA-Public Use
  Company Number: JP-VERTEX PHARMACEUTICALS INC-AE-2012-010268

PATIENT
  Age: 51 Year
  Sex: Male

DRUGS (10)
  1. VX-950 (TELAPREVIR) [Suspect]
     Indication: HEPATITIS C
     Dosage: 2250 MG, QD
     Route: 048
     Dates: start: 20120410, end: 20120624
  2. RIBAVIRIN [Suspect]
     Indication: CHRONIC HEPATITIS C
     Dosage: 1000 MG, QD
     Route: 048
     Dates: start: 20120410, end: 20120624
  3. PEGINTERFERON ALFA-2B [Suspect]
     Indication: CHRONIC HEPATITIS C
     Dosage: 1.5 ?G/KG, QW
     Route: 058
     Dates: start: 20120410, end: 20120618
  4. INSULIN [Suspect]
     Indication: PRODUCT USED FOR UNKNOWN INDICATION
     Route: 051
  5. OMEPRAL [Concomitant]
     Dosage: 10 MG, QD
     Route: 048
  6. BAYASPIRIN [Concomitant]
     Dosage: 100 MG, QD
     Route: 048
  7. METHYCOOL [Concomitant]
     Dosage: 1500 ?G, QD
     Route: 048
  8. DEPAS [Concomitant]
     Dosage: 0.5 MG, QD
     Route: 048
  9. BENZALIN [Concomitant]
     Dosage: 10 MG, QD, PRN
     Route: 048
  10. LOXONIN [Concomitant]
     Dosage: 60 MG, QD, PRN
     Route: 048

REACTIONS (1)
  - Retinopathy [Recovered/Resolved]
